FAERS Safety Report 10786515 (Version 2)
Quarter: 2016Q3

REPORT INFORMATION
  Report Type: Spontaneous
  Country: US (occurrence: US)
  Receive Date: 20150211
  Receipt Date: 20160908
  Transmission Date: 20161109
  Serious: No
  Sender: FDA-Public Use
  Company Number: US-GLAXOSMITHKLINE-A1075097A

PATIENT
  Sex: Female

DRUGS (4)
  1. REQUIP [Suspect]
     Active Substance: ROPINIROLE HYDROCHLORIDE
     Indication: PARKINSON^S DISEASE
     Dosage: PATIENT REPORTED SHE TAKES 2 MG THREE TIMES PER DAY AT MORNING, LUNCH AND EVENING, AND HER PHYS[...]
     Route: 048
  2. ROPINIROLE TABLET [Suspect]
     Active Substance: ROPINIROLE
     Dosage: 4 MG, UNK
     Dates: start: 1997
  3. ROPINIROLE TABLET [Suspect]
     Active Substance: ROPINIROLE
     Indication: PARKINSON^S DISEASE
     Dosage: PATIENT REPORTED SHE TAKES 2 MG THREE TIMES PER DAY AT MORNING, LUNCH AND EVENING, AND HER PHYS[...]
     Route: 048
  4. STALEVO [Concomitant]
     Active Substance: CARBIDOPA\ENTACAPONE\LEVODOPA

REACTIONS (6)
  - Therapeutic response decreased [Not Recovered/Not Resolved]
  - Gait disturbance [Unknown]
  - Product substitution issue [Unknown]
  - Osteoporosis [Unknown]
  - Drug ineffective [Unknown]
  - Asthenia [Not Recovered/Not Resolved]
